FAERS Safety Report 12420816 (Version 1)
Quarter: 2016Q2

REPORT INFORMATION
  Report Type: Spontaneous
  Country: JP (occurrence: JP)
  Receive Date: 20160531
  Receipt Date: 20160531
  Transmission Date: 20160815
  Serious: Yes (Other)
  Sender: FDA-Public Use
  Company Number: JP-WATSON-2016-10991

PATIENT
  Age: 68 Year
  Sex: Male

DRUGS (4)
  1. CISPLATIN (UNKNOWN) [Suspect]
     Active Substance: CISPLATIN
     Indication: METASTATIC MALIGNANT MELANOMA
     Dosage: 140 MG, CYCLICAL, 7 COURSES
     Route: 065
     Dates: end: 201304
  2. DACARBAZINE. [Suspect]
     Active Substance: DACARBAZINE
     Indication: METASTATIC MALIGNANT MELANOMA
     Dosage: 265 MG, CYCLICAL, 7 COURSES
     Route: 065
     Dates: end: 201304
  3. NIMUSTINE HYDROCHLORIDE [Suspect]
     Active Substance: NIMUSTINE HYDROCHLORIDE
     Indication: METASTATIC MALIGNANT MELANOMA
     Dosage: 100 MG, CYCLICAL, 7 COURSES
     Route: 065
     Dates: end: 201304
  4. TAMOXIFEN (UNKNOWN) [Suspect]
     Active Substance: TAMOXIFEN
     Indication: METASTATIC MALIGNANT MELANOMA
     Dosage: 20 MG, DAILY
     Route: 065
     Dates: end: 201304

REACTIONS (1)
  - Anaemia [Unknown]

NARRATIVE: CASE EVENT DATE: 201304
